FAERS Safety Report 13462430 (Version 1)
Quarter: 2017Q2

REPORT INFORMATION
  Report Type: Spontaneous
  Country: US (occurrence: US)
  Receive Date: 20170420
  Receipt Date: 20170420
  Transmission Date: 20170830
  Serious: Yes (Other)
  Sender: FDA-Public Use
  Company Number: US-PFIZER INC-2017164155

PATIENT
  Sex: Female

DRUGS (1)
  1. XELJANZ [Suspect]
     Active Substance: TOFACITINIB CITRATE

REACTIONS (7)
  - Arthralgia [Unknown]
  - Blood creatinine increased [Unknown]
  - Musculoskeletal stiffness [Unknown]
  - Malaise [Recovered/Resolved]
  - Psoriasis [Recovered/Resolved]
  - Nephrolithiasis [Unknown]
  - Swelling [Unknown]
